FAERS Safety Report 20166182 (Version 1)
Quarter: 2021Q4

REPORT INFORMATION
  Report Type: Spontaneous
  Country: US (occurrence: None)
  Receive Date: 20211208
  Receipt Date: 20211208
  Transmission Date: 20220304
  Serious: Yes (Hospitalization)
  Sender: FDA-Public Use
  Company Number: None

PATIENT
  Age: 72 Year
  Sex: Male
  Weight: 111.6 kg

DRUGS (1)
  1. REGEN-COV [Suspect]
     Active Substance: CASIRIVIMAB\IMDEVIMAB
     Indication: COVID-19
     Dosage: FREQUENCY : ONCE;?
     Route: 041
     Dates: start: 20211203, end: 20211203

REACTIONS (5)
  - Pyrexia [None]
  - Dyspnoea [None]
  - Oxygen saturation decreased [None]
  - Infusion related reaction [None]
  - COVID-19 [None]

NARRATIVE: CASE EVENT DATE: 20211203
